FAERS Safety Report 22531781 (Version 1)
Quarter: 2023Q2

REPORT INFORMATION
  Report Type: Spontaneous
  Country: US (occurrence: None)
  Receive Date: 20230606
  Receipt Date: 20230606
  Transmission Date: 20230722
  Serious: No
  Sender: FDA-Public Use
  Company Number: None

PATIENT
  Sex: Male
  Weight: 68.49 kg

DRUGS (14)
  1. ABIRATERONE ACETATE [Suspect]
     Active Substance: ABIRATERONE ACETATE
     Indication: Prostate cancer
     Dosage: FREQUENCY : DAILY;?
     Route: 048
     Dates: start: 202301
  2. AMLODIPINE [Concomitant]
  3. Aspirin [Concomitant]
  4. CALCIUM [Concomitant]
     Active Substance: CALCIUM
  5. CLONIDINE [Concomitant]
     Active Substance: CLONIDINE
  6. LATANOPROST [Concomitant]
     Active Substance: LATANOPROST
  7. LEUPROLIDE [Concomitant]
     Active Substance: LEUPROLIDE
  8. METFORMIN [Concomitant]
  9. PANTOPRAZOLE [Concomitant]
  10. PREDNISOLONE [Concomitant]
  11. PYRIDOSTIGMINE [Concomitant]
  12. SIMVASTATIN [Concomitant]
  13. TIMOLOL [Concomitant]
  14. VITAMIN D3 [Concomitant]
     Active Substance: CHOLECALCIFEROL

REACTIONS (1)
  - Disease progression [None]
